FAERS Safety Report 6305518-2 (Version None)
Quarter: 2009Q3

REPORT INFORMATION
  Report Type: 
  Country: None (occurrence: None)
  Receive Date: 20090811
  Receipt Date: 20090731
  Transmission Date: 20100115
  Serious: Yes (Death, Hospitalization, Other)
  Sender: FDA-Public Use
  Company Number: FR-BAXTER-2009BH012172

PATIENT
  Age: 83 Year
  Sex: Male
  Weight: 67 kg

DRUGS (14)
  1. DIANEAL [Suspect]
     Indication: PERITONEAL DIALYSIS
     Route: 033
     Dates: start: 20090701, end: 20090716
  2. EXTRANEAL [Suspect]
     Indication: PERITONEAL DIALYSIS
     Route: 033
     Dates: start: 20090701, end: 20090716
  3. CALTRATE [Suspect]
     Indication: DRUG USE FOR UNKNOWN INDICATION
  4. VITAMIN D [Suspect]
     Indication: DRUG USE FOR UNKNOWN INDICATION
  5. ARANESP [Concomitant]
     Indication: DRUG USE FOR UNKNOWN INDICATION
     Route: 058
     Dates: start: 20090715
  6. CARDENSIEL [Concomitant]
     Indication: DRUG USE FOR UNKNOWN INDICATION
     Route: 048
     Dates: start: 20081212
  7. ROSUVASTATIN CALCIUM [Concomitant]
     Indication: DRUG USE FOR UNKNOWN INDICATION
     Route: 048
     Dates: start: 20081212
  8. EUPANTOL [Concomitant]
     Indication: DRUG USE FOR UNKNOWN INDICATION
     Route: 048
     Dates: start: 20081212
  9. FUROSEMIDE [Concomitant]
     Indication: DRUG USE FOR UNKNOWN INDICATION
     Route: 048
     Dates: start: 20081212
  10. KARDEGIC                                /FRA/ [Concomitant]
     Indication: DRUG USE FOR UNKNOWN INDICATION
     Route: 048
     Dates: start: 20081212
  11. PLAVIX [Concomitant]
     Indication: DRUG USE FOR UNKNOWN INDICATION
     Route: 048
     Dates: start: 20081212
  12. ENALAPRIL MALEATE [Concomitant]
     Indication: DRUG USE FOR UNKNOWN INDICATION
     Route: 048
     Dates: start: 20081212
  13. TARDYFERON B(9) [Concomitant]
     Indication: DRUG USE FOR UNKNOWN INDICATION
     Route: 048
     Dates: start: 20090324
  14. ALLOPURINOL [Concomitant]
     Indication: DRUG USE FOR UNKNOWN INDICATION
     Route: 048
     Dates: start: 20081212

REACTIONS (9)
  - ABDOMINAL DISTENSION [None]
  - BLOOD LACTIC ACID INCREASED [None]
  - CARDIAC FIBRILLATION [None]
  - CYANOSIS [None]
  - HYPERCALCAEMIA [None]
  - HYPOTHERMIA [None]
  - RESPIRATORY FAILURE [None]
  - SHOCK [None]
  - ULTRAFILTRATION FAILURE [None]
